FAERS Safety Report 11556036 (Version 1)
Quarter: 2015Q3

REPORT INFORMATION
  Report Type: Spontaneous
  Country: US (occurrence: US)
  Receive Date: 20150916
  Receipt Date: 20150916
  Transmission Date: 20151125
  Serious: No
  Sender: FDA-Public Use
  Company Number: US-ELI_LILLY_AND_COMPANY-US200705005237

PATIENT
  Sex: Female

DRUGS (4)
  1. CALCIUM CARBONATE. [Concomitant]
     Active Substance: CALCIUM CARBONATE
  2. BONIVA [Concomitant]
     Active Substance: IBANDRONATE SODIUM
  3. FORTEO [Suspect]
     Active Substance: TERIPARATIDE
     Indication: OSTEOPOROSIS
     Dates: start: 2004, end: 2005
  4. FORTEO [Suspect]
     Active Substance: TERIPARATIDE
     Dates: start: 2006

REACTIONS (2)
  - Bone pain [Not Recovered/Not Resolved]
  - Bone density decreased [Not Recovered/Not Resolved]
